FAERS Safety Report 7235838-9 (Version None)
Quarter: 2011Q1

REPORT INFORMATION
  Report Type: 
  Country: None (occurrence: None)
  Receive Date: 20110120
  Receipt Date: 20101207
  Transmission Date: 20110831
  Serious: Yes (Hospitalization, Other)
  Sender: FDA-Public Use
  Company Number: US-BAXTER-2010BH003389

PATIENT
  Age: 50 Year
  Sex: Male
  Weight: 149 kg

DRUGS (36)
  1. HEPARIN SODIUM INJECTION [Suspect]
     Indication: IMPLANTABLE DEFIBRILLATOR INSERTION
     Route: 042
     Dates: start: 20080324, end: 20080324
  2. CARVEDILOL [Concomitant]
     Indication: PRODUCT USED FOR UNKNOWN INDICATION
     Route: 065
  3. FUROSEMIDE [Concomitant]
     Indication: PRODUCT USED FOR UNKNOWN INDICATION
     Route: 065
  4. XANAX [Concomitant]
     Indication: ANXIETY
     Route: 048
     Dates: start: 20080325
  5. HEPARIN SODIUM INJECTION [Suspect]
     Indication: ATRIAL FIBRILLATION
     Route: 042
     Dates: start: 20080324, end: 20080324
  6. HEPARIN SODIUM INJECTION [Suspect]
     Route: 042
     Dates: start: 20080504, end: 20080506
  7. HEPARIN SODIUM INJECTION [Suspect]
     Route: 040
     Dates: start: 20080324, end: 20080324
  8. LOPRESSOR [Concomitant]
     Indication: PRODUCT USED FOR UNKNOWN INDICATION
     Route: 065
  9. SIMVASTATIN [Concomitant]
     Indication: PRODUCT USED FOR UNKNOWN INDICATION
     Route: 048
  10. HEPARIN SODIUM INJECTION [Suspect]
     Route: 042
     Dates: start: 20080504, end: 20080506
  11. HEPARIN SODIUM INJECTION [Suspect]
     Route: 042
     Dates: start: 20080504, end: 20080506
  12. HEPARIN SODIUM INJECTION [Suspect]
     Route: 040
     Dates: start: 20080324, end: 20080324
  13. ASPIRIN [Concomitant]
     Indication: PRODUCT USED FOR UNKNOWN INDICATION
     Route: 065
  14. CHANTIX [Concomitant]
     Indication: PRODUCT USED FOR UNKNOWN INDICATION
     Route: 048
  15. HEPARIN SODIUM INJECTION [Suspect]
     Route: 040
     Dates: start: 20080325, end: 20080325
  16. HEPARIN SODIUM INJECTION [Suspect]
     Route: 040
     Dates: start: 20080324, end: 20080324
  17. IMDUR [Concomitant]
     Indication: PRODUCT USED FOR UNKNOWN INDICATION
     Route: 065
  18. ISOSORBIDE DINITRATE [Concomitant]
     Indication: PRODUCT USED FOR UNKNOWN INDICATION
     Route: 048
  19. HEPARIN SODIUM INJECTION [Suspect]
     Route: 042
     Dates: start: 20080324, end: 20080326
  20. HEPARIN SODIUM INJECTION [Suspect]
     Route: 040
     Dates: start: 20080324, end: 20080324
  21. WARFARIN [Concomitant]
     Indication: PRODUCT USED FOR UNKNOWN INDICATION
     Route: 065
  22. HEPARIN SODIUM INJECTION [Suspect]
     Indication: CATHETERISATION CARDIAC
     Route: 042
     Dates: start: 20080324, end: 20080324
  23. HEPARIN SODIUM INJECTION [Suspect]
     Route: 042
     Dates: start: 20080324, end: 20080326
  24. HEPARIN SODIUM INJECTION [Suspect]
     Route: 040
     Dates: start: 20080324, end: 20080324
  25. DILTIAZEM [Concomitant]
     Indication: PRODUCT USED FOR UNKNOWN INDICATION
     Route: 065
  26. SPIRONOLACTONE [Concomitant]
     Indication: PRODUCT USED FOR UNKNOWN INDICATION
     Route: 065
  27. HEPARIN SODIUM INJECTION [Suspect]
     Route: 040
     Dates: start: 20080325, end: 20080325
  28. HEPARIN SODIUM INJECTION [Suspect]
     Route: 042
     Dates: start: 20080324, end: 20080326
  29. DIGOXIN [Concomitant]
     Indication: PRODUCT USED FOR UNKNOWN INDICATION
     Route: 065
  30. METFORMIN [Concomitant]
     Route: 065
  31. NITROGLYCERIN [Concomitant]
     Indication: PRODUCT USED FOR UNKNOWN INDICATION
     Route: 048
  32. HEPARIN SODIUM INJECTION [Suspect]
     Route: 040
     Dates: start: 20080325, end: 20080325
  33. HEPARIN SODIUM INJECTION [Suspect]
     Route: 040
     Dates: start: 20080324, end: 20080324
  34. ENALAPRIL [Concomitant]
     Indication: PRODUCT USED FOR UNKNOWN INDICATION
     Route: 065
  35. METFORMIN [Concomitant]
     Indication: PRODUCT USED FOR UNKNOWN INDICATION
     Route: 065
  36. ASPIRIN [Concomitant]
     Route: 048

REACTIONS (14)
  - CHEST PAIN [None]
  - CARDIOMEGALY [None]
  - HEPARIN-INDUCED THROMBOCYTOPENIA [None]
  - HYPOAESTHESIA [None]
  - IMPETIGO [None]
  - PHARYNGEAL OEDEMA [None]
  - DYSPHAGIA [None]
  - BLOOD PRESSURE DECREASED [None]
  - CHOKING [None]
  - COUGH [None]
  - DIZZINESS [None]
  - NIGHT SWEATS [None]
  - DYSPNOEA [None]
  - PALPITATIONS [None]
